FAERS Safety Report 7595776-9 (Version None)
Quarter: 2011Q3

REPORT INFORMATION
  Report Type: 
  Country: None (occurrence: None)
  Receive Date: 20110707
  Receipt Date: 20110705
  Transmission Date: 20111222
  Serious: Yes (Other)
  Sender: FDA-Public Use
  Company Number: US-PFIZER INC-2011141302

PATIENT
  Age: 46 Year
  Sex: Male

DRUGS (6)
  1. METHADONE HCL [Suspect]
     Indication: PAIN
     Dosage: 10 MG, UNK
     Route: 048
  2. LYRICA [Suspect]
     Indication: FIBROMYALGIA
     Dosage: 100 MG, 3X/DAY
     Route: 048
  3. MOTRIN [Concomitant]
     Dosage: UNK
     Route: 048
  4. SAVELLA [Suspect]
     Dosage: UNK
     Route: 048
  5. METOPROLOL [Concomitant]
     Indication: BRADYCARDIA
  6. METOPROLOL [Concomitant]
     Indication: PALPITATIONS
     Dosage: UNK
     Route: 048

REACTIONS (21)
  - JOINT INJURY [None]
  - HYPERSOMNIA [None]
  - STRESS [None]
  - SUICIDAL IDEATION [None]
  - NECK INJURY [None]
  - BACK INJURY [None]
  - SINUS HEADACHE [None]
  - TREMOR [None]
  - ANXIETY [None]
  - PAIN [None]
  - PAIN IN EXTREMITY [None]
  - MALAISE [None]
  - INSOMNIA [None]
  - MUSCLE SPASMS [None]
  - FEELING ABNORMAL [None]
  - SWELLING [None]
  - HEADACHE [None]
  - FATIGUE [None]
  - LOWER LIMB FRACTURE [None]
  - DEPRESSION [None]
  - AGITATION [None]
